FAERS Safety Report 11804784 (Version 1)
Quarter: 2015Q4

REPORT INFORMATION
  Report Type: Spontaneous
  Country: US (occurrence: None)
  Receive Date: 20151203
  Receipt Date: 20151203
  Transmission Date: 20160305
  Serious: Yes (Hospitalization)
  Sender: FDA-Public Use
  Company Number: None

PATIENT
  Age: 75 Year
  Sex: Male
  Weight: 96 kg

DRUGS (2)
  1. RITUXIMAB (MOAB C2B8 AND CD20, CHIMERIC) [Suspect]
     Active Substance: RITUXIMAB
     Dates: end: 20151117
  2. BENDAMISTINE HYDROCHLORIDE [Suspect]
     Active Substance: BENDAMUSTINE HYDROCHLORIDE
     Dates: end: 20151119

REACTIONS (5)
  - Tumour lysis syndrome [None]
  - Vomiting [None]
  - Renal failure [None]
  - Abdominal pain [None]
  - Haematuria [None]

NARRATIVE: CASE EVENT DATE: 20151125
